FAERS Safety Report 24841675 (Version 1)
Quarter: 2025Q1

REPORT INFORMATION
  Report Type: Spontaneous
  Country: US (occurrence: US)
  Receive Date: 20250114
  Receipt Date: 20250114
  Transmission Date: 20250408
  Serious: No
  Sender: VERTEX
  Company Number: US-VERTEX PHARMACEUTICALS-2022-003966

PATIENT
  Age: 46 Year
  Sex: Female
  Weight: 53 kg

DRUGS (7)
  1. TRIKAFTA [Suspect]
     Active Substance: ELEXACAFTOR\IVACAFTOR\TEZACAFTOR
     Indication: Cystic fibrosis
     Dosage: TWO ORANGE TABLETS AM AND ONE BLUE TABLET PM; REGULAR DOSE
     Route: 048
     Dates: start: 20200325
  2. JUNEL FE 1/20 [Concomitant]
     Active Substance: ETHINYL ESTRADIOL\NORETHINDRONE ACETATE
     Indication: Menopause
  3. MIRENA [Concomitant]
     Active Substance: LEVONORGESTREL
  4. TRETINOIN [Concomitant]
     Active Substance: TRETINOIN
  5. BENZOYL PEROXIDE\CLINDAMYCIN PHOSPHATE [Concomitant]
     Active Substance: BENZOYL PEROXIDE\CLINDAMYCIN PHOSPHATE
  6. ALBUTEROL SULFATE [Concomitant]
     Active Substance: ALBUTEROL SULFATE
  7. PROTONIX [Concomitant]
     Active Substance: PANTOPRAZOLE SODIUM

REACTIONS (6)
  - COVID-19 [Unknown]
  - Inflammation [Not Recovered/Not Resolved]
  - Arthralgia [Unknown]
  - Ankle impingement [Unknown]
  - Chondropathy [Unknown]
  - Allergy to metals [Unknown]

NARRATIVE: CASE EVENT DATE: 20200301
